FAERS Safety Report 5772787-7 (Version None)
Quarter: 2008Q2

REPORT INFORMATION
  Report Type: 
  Country: None (occurrence: None)
  Receive Date: 20080613
  Receipt Date: 20080602
  Transmission Date: 20081010
  Serious: Yes (Other)
  Sender: FDA-Public Use
  Company Number: US-PFIZER INC-2007074888

PATIENT
  Sex: Female

DRUGS (13)
  1. CHANTIX [Suspect]
     Indication: EX-SMOKER
  2. SERETIDE MITE [Suspect]
     Indication: CHRONIC OBSTRUCTIVE PULMONARY DISEASE
     Route: 055
  3. SPIRIVA [Concomitant]
     Indication: CHRONIC OBSTRUCTIVE PULMONARY DISEASE
  4. ALL OTHER THERAPEUTIC PRODUCTS [Concomitant]
  5. TUSSIN DM [Concomitant]
  6. NEXIUM [Concomitant]
  7. PROVIGIL [Concomitant]
  8. CLONAZEPAM [Concomitant]
  9. UNIPHYL [Concomitant]
  10. CYCLOBENZAPRINE HCL [Concomitant]
  11. LASIX [Concomitant]
  12. ONE-A-DAY [Concomitant]
  13. VITAMIN B-12 [Concomitant]

REACTIONS (6)
  - FUNGAL INFECTION [None]
  - HEADACHE [None]
  - MUSCULOSKELETAL DISORDER [None]
  - MUSCULOSKELETAL PAIN [None]
  - POLYP [None]
  - SURGERY [None]
